FAERS Safety Report 5045454-5 (Version None)
Quarter: 2006Q2

REPORT INFORMATION
  Report Type: 
  Country: None (occurrence: None)
  Receive Date: 20060630
  Receipt Date: 20060627
  Transmission Date: 20061013
  Serious: Yes (Death, Other)
  Sender: FDA-Public Use
  Company Number: HQWYE525727JAN06

PATIENT
  Age: 56 Year
  Sex: Male
  Weight: 111.7 kg

DRUGS (15)
  1. PROGRAF [Suspect]
     Indication: PROPHYLAXIS AGAINST TRANSPLANT REJECTION
     Dosage: 10MG 1X PER 1 DAY, ORAL; 6 MG 2X PER 1 DAY, ORAL
     Route: 048
     Dates: start: 20050630, end: 20060101
  2. PROGRAF [Suspect]
     Indication: PROPHYLAXIS AGAINST TRANSPLANT REJECTION
     Dosage: 10MG 1X PER 1 DAY, ORAL; 6 MG 2X PER 1 DAY, ORAL
     Route: 048
     Dates: start: 20060101, end: 20060624
  3. MULTIVITAMIN [Concomitant]
  4. NORVASC [Concomitant]
  5. ACTIGALL [Concomitant]
  6. BACTRIM [Concomitant]
  7. METOPROLOL TARTRATE [Concomitant]
  8. PERIDEX (CHLORHEXIDINE GLUCONATE) [Concomitant]
  9. DILAUDID [Concomitant]
  10. ULTRAM [Concomitant]
  11. FENTANYL [Concomitant]
  12. COLACE (DOCUSATE SODIUM) [Concomitant]
  13. SENNA (SENNA) [Concomitant]
  14. INFLUENZA VIRUS VACCINE (INFLUENZA VIRUS VACCINE POLYVALENT) [Concomitant]
  15. ASPIRIN [Concomitant]

REACTIONS (8)
  - ADENOCARCINOMA PANCREAS [None]
  - HEPATIC NEOPLASM MALIGNANT [None]
  - METASTASES TO LIVER [None]
  - METASTASES TO LUNG [None]
  - PANCREATIC ATROPHY [None]
  - PANCREATIC CARCINOMA METASTATIC [None]
  - PORTAL VEIN THROMBOSIS [None]
  - SPLENIC VEIN THROMBOSIS [None]
